FAERS Safety Report 10096622 (Version 1)
Quarter: 2014Q2

REPORT INFORMATION
  Report Type: Spontaneous
  Country: US (occurrence: None)
  Receive Date: 20140421
  Receipt Date: 20140421
  Transmission Date: 20141212
  Serious: No
  Sender: FDA-Public Use
  Company Number: None

PATIENT
  Age: 13 Year
  Sex: Male
  Weight: 45.36 kg

DRUGS (3)
  1. RISPERDAL [Suspect]
     Dosage: 0.5 MG (1 TAB), BID, ORAL
     Route: 048
     Dates: start: 20140405, end: 20140408
  2. VYVANSE 30MG SHIRE [Concomitant]
  3. PROZAC 10MG [Concomitant]

REACTIONS (2)
  - Sedation [None]
  - Condition aggravated [None]
